FAERS Safety Report 15372122 (Version 1)
Quarter: 2018Q3

REPORT INFORMATION
  Report Type: Spontaneous
  Country: NL (occurrence: NL)
  Receive Date: 20180911
  Receipt Date: 20180911
  Transmission Date: 20181010
  Serious: Yes (Hospitalization, Other)
  Sender: FDA-Public Use
  Company Number: NL-MYLANLABS-2018M1066329

PATIENT
  Age: 60 Year
  Sex: Female
  Weight: 54 kg

DRUGS (2)
  1. CLOMIPRAMINE [Suspect]
     Active Substance: CLOMIPRAMINE
     Indication: ANXIETY DISORDER
     Dosage: 25 MG, QD (DAG 1: 1DD1 TABLET, DAG2: 2DD1 TABLETTEN)
     Dates: start: 20180411, end: 20180412
  2. CLOMIPRAMINE [Suspect]
     Active Substance: CLOMIPRAMINE
     Dosage: 25 MG, 12 HOUR (DAG 1: 1DD1 TABLET, DAG2: 2DD1 TABLETTEN)
     Dates: start: 20180412, end: 20180413

REACTIONS (1)
  - Hyponatraemia [Recovering/Resolving]

NARRATIVE: CASE EVENT DATE: 20180413
